FAERS Safety Report 5769580-8 (Version None)
Quarter: 2008Q2

REPORT INFORMATION
  Report Type: 
  Country: None (occurrence: None)
  Receive Date: 20080612
  Receipt Date: 20080428
  Transmission Date: 20081010
  Serious: No
  Sender: FDA-Public Use
  Company Number: US-ABBOTT-08P-163-0445391-00

PATIENT
  Sex: Male
  Weight: 65.83 kg

DRUGS (2)
  1. HUMIRA [Suspect]
     Indication: CROHN'S DISEASE
     Route: 058
     Dates: start: 20061101, end: 20071201
  2. PREDNISONE TAB [Concomitant]
     Indication: CROHN'S DISEASE
     Dosage: 20 MG DAILY
     Dates: start: 20080208

REACTIONS (3)
  - FACIAL PARESIS [None]
  - MUSCULAR WEAKNESS [None]
  - PARAESTHESIA [None]
